FAERS Safety Report 24655251 (Version 1)
Quarter: 2024Q4

REPORT INFORMATION
  Report Type: Spontaneous
  Country: FR (occurrence: FR)
  Receive Date: 20241123
  Receipt Date: 20241123
  Transmission Date: 20250115
  Serious: Yes (Other)
  Sender: JOHNSON AND JOHNSON
  Company Number: None

PATIENT
  Age: 72 Year
  Sex: Female
  Weight: 55 kg

DRUGS (2)
  1. SPRAVATO [Suspect]
     Active Substance: ESKETAMINE
     Indication: Depression
     Route: 045
     Dates: start: 20240718, end: 20240725
  2. LOXAPINE [Concomitant]
     Active Substance: LOXAPINE
     Indication: Psychotic disorder
     Route: 065
     Dates: start: 20240723

REACTIONS (4)
  - Loss of consciousness [Recovered/Resolved]
  - Trismus [Recovered/Resolved]
  - Vision blurred [Unknown]
  - Hypertension [Recovered/Resolved]

NARRATIVE: CASE EVENT DATE: 20240725
